FAERS Safety Report 5700744-5 (Version None)
Quarter: 2008Q2

REPORT INFORMATION
  Report Type: 
  Country: None (occurrence: None)
  Receive Date: 20080410
  Receipt Date: 20080221
  Transmission Date: 20081010
  Serious: No
  Sender: FDA-Public Use
  Company Number: A0711022A

PATIENT
  Age: 50 Year
  Sex: Female

DRUGS (5)
  1. TYKERB [Suspect]
     Indication: BREAST CANCER
     Dosage: 5TAB PER DAY
     Route: 048
     Dates: start: 20080116
  2. XELODA [Suspect]
     Indication: BREAST CANCER
     Dosage: 1000MG TWICE PER DAY
     Route: 048
     Dates: start: 20080116
  3. PAXIL [Concomitant]
  4. WELLBUTRIN [Concomitant]
  5. CLARITIN [Concomitant]

REACTIONS (1)
  - DIARRHOEA [None]
